FAERS Safety Report 4405258-0 (Version None)
Quarter: 2004Q3

REPORT INFORMATION
  Report Type: 
  Country: None (occurrence: None)
  Receive Date: 20040723
  Receipt Date: 20040713
  Transmission Date: 20050211
  Serious: Yes (Disabling, Other)
  Sender: FDA-Public Use
  Company Number: ES-BRISTOL-MYERS SQUIBB COMPANY-12641023

PATIENT
  Sex: Male

DRUGS (1)
  1. TRIGON-DEPOT-INJ 40 MG/ML [Suspect]
     Indication: CHRONIC OBSTRUCTIVE AIRWAYS DISEASE
     Route: 051

REACTIONS (3)
  - ABASIA [None]
  - MEDICATION ERROR [None]
  - MYOPATHY [None]
